FAERS Safety Report 14067061 (Version 1)
Quarter: 2017Q4

REPORT INFORMATION
  Report Type: Spontaneous
  Country: US (occurrence: US)
  Receive Date: 20171010
  Receipt Date: 20171010
  Transmission Date: 20180321
  Serious: Yes (Other)
  Sender: FDA-Public Use
  Company Number: US-AMGEN-USASP2017149806

PATIENT
  Age: 67 Year
  Sex: Female

DRUGS (1)
  1. PROLIA [Suspect]
     Active Substance: DENOSUMAB
     Indication: PRODUCT USED FOR UNKNOWN INDICATION
     Dosage: UNK
     Route: 065
     Dates: start: 20170526

REACTIONS (9)
  - Skin burning sensation [Unknown]
  - Back pain [Unknown]
  - Rash papular [Unknown]
  - Spinal fusion surgery [Unknown]
  - Wound complication [Not Recovered/Not Resolved]
  - Rash [Unknown]
  - Peripheral swelling [Unknown]
  - Rash pruritic [Unknown]
  - Exfoliative rash [Unknown]

NARRATIVE: CASE EVENT DATE: 2017
